FAERS Safety Report 18063687 (Version 1)
Quarter: 2020Q3

REPORT INFORMATION
  Report Type: Spontaneous
  Country: FR (occurrence: FR)
  Receive Date: 20200723
  Receipt Date: 20200723
  Transmission Date: 20201103
  Serious: Yes (Death)
  Sender: FDA-Public Use
  Company Number: FR-BAXTER-2020BAX014818

PATIENT
  Age: 50 Year
  Sex: Male
  Weight: 73 kg

DRUGS (12)
  1. FLUDARABINE PHOSPHATE. [Suspect]
     Active Substance: FLUDARABINE PHOSPHATE
     Indication: HODGKIN^S DISEASE
     Route: 042
     Dates: start: 20200115, end: 20200119
  2. BUSULFAN. [Suspect]
     Active Substance: BUSULFAN
     Indication: HODGKIN^S DISEASE
     Route: 042
     Dates: start: 20200116, end: 20200117
  3. CASPOFUNGIN BASE [Concomitant]
     Indication: INFECTION
     Dosage: NOT SPECIFIED
     Route: 042
     Dates: start: 20200113
  4. FLEBOGAMMA DIF [Suspect]
     Active Substance: HUMAN IMMUNOGLOBULIN G
     Indication: IMMUNODEFICIENCY
     Dosage: NOT SPECIFIED
     Route: 065
     Dates: start: 20200113, end: 20200113
  5. MESNA. [Concomitant]
     Active Substance: MESNA
     Indication: PROPHYLAXIS
     Route: 065
     Dates: start: 20200108, end: 20200111
  6. ENDOXAN 1000 MG, POUDRE POUR SOLUTIONINJECTABLE [Suspect]
     Active Substance: CYCLOPHOSPHAMIDE
     Indication: HODGKIN^S DISEASE
     Route: 042
     Dates: start: 20200108, end: 20200111
  7. IMIPENEM ANHYDROUS [Concomitant]
     Active Substance: IMIPENEM
     Indication: INFECTION
     Dosage: NOT SPECIFIED
     Route: 042
     Dates: start: 20200114
  8. TEICOPLANIN [Concomitant]
     Active Substance: TEICOPLANIN
     Indication: INFECTION
     Dosage: NOT SPECIFIED
     Route: 065
     Dates: start: 20200113
  9. CELLTOP 100 MG/5 ML, SOLUTION INJECTABLE POUR PERFUSION [Suspect]
     Active Substance: ETOPOSIDE
     Indication: HODGKIN^S DISEASE
     Route: 042
     Dates: start: 20200108, end: 20200111
  10. TAZOCILLINE [Suspect]
     Active Substance: PIPERACILLIN SODIUM\TAZOBACTAM SODIUM
     Indication: INFECTION
     Dosage: NOT SPECIFIED
     Route: 042
     Dates: start: 20200109, end: 20200113
  11. THYMOGLOBULIN [Concomitant]
     Active Substance: LAPINE T-LYMPHOCYTE IMMUNE GLOBULIN
     Indication: HODGKIN^S DISEASE
     Route: 042
     Dates: start: 20200118, end: 20200119
  12. DEFITELIO [Concomitant]
     Active Substance: DEFIBROTIDE SODIUM
     Indication: PROPHYLAXIS
     Dosage: NOT SPECIFIED, CONCENTRATED SOLUTION TO DILUTE FOR INFUSION
     Route: 065
     Dates: start: 20200117

REACTIONS (1)
  - Venoocclusive disease [Fatal]

NARRATIVE: CASE EVENT DATE: 20200120
